FAERS Safety Report 9269780 (Version 1)
Quarter: 2013Q2

REPORT INFORMATION
  Report Type: Report from Study
  Country: GB (occurrence: GB)
  Receive Date: 20130503
  Receipt Date: 20130503
  Transmission Date: 20140414
  Serious: Yes (Congenital Anomaly)
  Sender: FDA-Public Use
  Company Number: GB-ASTELLAS-2013EU003869

PATIENT
  Sex: Male

DRUGS (1)
  1. ENZALUTAMIDE [Suspect]
     Dosage: UNK
     Route: 065
     Dates: start: 20130226

REACTIONS (4)
  - Transaminases increased [Not Recovered/Not Resolved]
  - Chills [Recovering/Resolving]
  - Vomiting [Recovering/Resolving]
  - Nausea [Unknown]
